FAERS Safety Report 6970033-X (Version None)
Quarter: 2010Q3

REPORT INFORMATION
  Report Type: 
  Country: None (occurrence: None)
  Receive Date: 20100823
  Receipt Date: 20100617
  Transmission Date: 20110219
  Serious: No
  Sender: FDA-Public Use
  Company Number: 014316

PATIENT
  Sex: Male
  Weight: 69.1 kg

DRUGS (6)
  1. CIMZIA [Suspect]
     Indication: CROHN'S DISEASE
     Dosage: (200 MG 1X/MONTH SUBCUTANEOUS)
     Route: 058
     Dates: start: 20100101
  2. ENTOCORT EC [Concomitant]
  3. DEPAKOTE [Concomitant]
  4. PENICILLIN [Concomitant]
  5. MACROBID [Concomitant]
  6. PHENAZOPYRIDINE HCL TAB [Concomitant]

REACTIONS (3)
  - ABDOMINAL PAIN [None]
  - DIARRHOEA [None]
  - URINARY TRACT INFECTION [None]
